FAERS Safety Report 18755232 (Version 3)
Quarter: 2021Q1

REPORT INFORMATION
  Report Type: Report from Study
  Country: CO (occurrence: CO)
  Receive Date: 20210119
  Receipt Date: 20210225
  Transmission Date: 20210419
  Serious: Yes (Death, Hospitalization)
  Sender: FDA-Public Use
  Company Number: NVSC2021CO010705

PATIENT
  Sex: Female

DRUGS (1)
  1. VOTRIENT [Suspect]
     Active Substance: PAZOPANIB HYDROCHLORIDE
     Indication: SOFT TISSUE SARCOMA
     Dosage: UNK
     Route: 048

REACTIONS (5)
  - Internal haemorrhage [Fatal]
  - Bone neoplasm [Unknown]
  - Tumour rupture [Unknown]
  - Pain [Unknown]
  - Anal haemorrhage [Fatal]
